FAERS Safety Report 21414125 (Version 1)
Quarter: 2022Q4

REPORT INFORMATION
  Report Type: Spontaneous
  Country: SI (occurrence: SI)
  Receive Date: 20221006
  Receipt Date: 20221006
  Transmission Date: 20230113
  Serious: Yes (Other)
  Sender: FDA-Public Use
  Company Number: SI-002147023-NVSC2022SI216614

PATIENT
  Age: 46 Year
  Sex: Female

DRUGS (4)
  1. ENBREL [Suspect]
     Active Substance: ETANERCEPT
     Indication: Product used for unknown indication
     Dosage: UNK
     Route: 065
  2. METHYLPREDNISOLONE [Suspect]
     Active Substance: METHYLPREDNISOLONE
     Indication: Product used for unknown indication
     Dosage: UNK
     Route: 065
  3. SULFASALAZINE [Suspect]
     Active Substance: SULFASALAZINE
     Indication: Product used for unknown indication
     Dosage: UNK
     Route: 065
  4. RITUXIMAB [Suspect]
     Active Substance: RITUXIMAB
     Indication: Rheumatoid arthritis
     Dosage: 1000 MILLIGRAM, UNK
     Route: 065
     Dates: start: 202205

REACTIONS (11)
  - Haemorrhage [Unknown]
  - Disturbance in sexual arousal [Unknown]
  - Vulvovaginal dryness [Unknown]
  - Vulvovaginal pain [Unknown]
  - Anorgasmia [Unknown]
  - Musculoskeletal stiffness [Unknown]
  - Menstruation irregular [Unknown]
  - Libido decreased [Unknown]
  - Fatigue [Unknown]
  - Fungal infection [Unknown]
  - Herpes simplex [Unknown]
